FAERS Safety Report 7786919-2 (Version None)
Quarter: 2011Q3

REPORT INFORMATION
  Report Type: 
  Country: None (occurrence: None)
  Receive Date: 20110929
  Receipt Date: 20110919
  Transmission Date: 20111222
  Serious: Yes (Other)
  Sender: FDA-Public Use
  Company Number: GB-BRISTOL-MYERS SQUIBB COMPANY-16110959

PATIENT
  Sex: Male

DRUGS (7)
  1. MYCOPHENOLATE MOFETIL [Suspect]
     Indication: VASCULITIS
  2. CYCLOSPORINE [Suspect]
     Dosage: INITIAL DOSE:1MG/KG MAX DOSE:60MG DOSE DEC:10MG/D
  3. CYCLOPHOSPHAMIDE [Suspect]
     Indication: VASCULITIS
     Route: 048
  4. METHYLPREDNISOLONE [Suspect]
  5. AZATHIOPRINE [Suspect]
     Indication: VASCULITIS
  6. CYCLOPHOSPHAMIDE [Suspect]
     Indication: VASCULITIS
     Dosage: TOTAL 3 DOSES FOLLOWING BY 3 WEEKS FOR ANOTHER 2-4 DOSES
     Route: 042
  7. RITUXIMAB [Suspect]

REACTIONS (4)
  - URINARY TRACT INFECTION [None]
  - LOWER RESPIRATORY TRACT INFECTION [None]
  - WEGENER'S GRANULOMATOSIS [None]
  - RENAL FAILURE CHRONIC [None]
